FAERS Safety Report 22108327 (Version 4)
Quarter: 2023Q1

REPORT INFORMATION
  Report Type: Spontaneous
  Country: US (occurrence: US)
  Receive Date: 20230317
  Receipt Date: 20230328
  Transmission Date: 20230417
  Serious: Yes (Hospitalization, Other)
  Sender: FDA-Public Use
  Company Number: US-SA-SAC20230316000248

PATIENT
  Sex: Male

DRUGS (12)
  1. ELOCTATE [Suspect]
     Active Substance: EFMOROCTOCOG ALFA
     Indication: Factor VIII deficiency
     Dosage: 850 U (765-935), ONCE AS NEEDED (FOR MINOR BLEED)
     Route: 042
     Dates: start: 201303
  2. ELOCTATE [Suspect]
     Active Substance: EFMOROCTOCOG ALFA
     Indication: Factor VIII deficiency
     Dosage: 850 U (765-935), ONCE AS NEEDED (FOR MINOR BLEED)
     Route: 042
     Dates: start: 201303
  3. ELOCTATE [Suspect]
     Active Substance: EFMOROCTOCOG ALFA
     Dosage: 1200 U, TIW
     Route: 042
     Dates: start: 20180507, end: 202212
  4. ELOCTATE [Suspect]
     Active Substance: EFMOROCTOCOG ALFA
     Dosage: 1200 U, TIW
     Route: 042
     Dates: start: 20180507, end: 202212
  5. ELOCTATE [Suspect]
     Active Substance: EFMOROCTOCOG ALFA
     Dosage: 850 U, ONCE AS NEEDED
     Route: 042
     Dates: start: 202212
  6. ELOCTATE [Suspect]
     Active Substance: EFMOROCTOCOG ALFA
     Dosage: 850 U, ONCE AS NEEDED
     Route: 042
     Dates: start: 202212
  7. ELOCTATE [Suspect]
     Active Substance: EFMOROCTOCOG ALFA
     Dosage: 1700 U (1530-1870) (FOR MAJOR BLEED)
     Route: 042
  8. ELOCTATE [Suspect]
     Active Substance: EFMOROCTOCOG ALFA
     Dosage: 1700 U (1530-1870) (FOR MAJOR BLEED)
     Route: 042
  9. ELOCTATE [Suspect]
     Active Substance: EFMOROCTOCOG ALFA
     Dosage: 1950 U (1755-2145) ONCE A WEEK ON FRIDAYS
     Route: 042
  10. ELOCTATE [Suspect]
     Active Substance: EFMOROCTOCOG ALFA
     Dosage: 1950 U (1755-2145) ONCE A WEEK ON FRIDAYS
     Route: 042
  11. ELOCTATE [Suspect]
     Active Substance: EFMOROCTOCOG ALFA
     Dosage: 1200 U (1080-1320) 2 TIMES A WEEK ON MONDAY AND WEDNESDAYS
     Route: 042
  12. ELOCTATE [Suspect]
     Active Substance: EFMOROCTOCOG ALFA
     Dosage: 1200 U (1080-1320) 2 TIMES A WEEK ON MONDAY AND WEDNESDAYS
     Route: 042

REACTIONS (2)
  - Epidural haemorrhage [Unknown]
  - Head injury [Unknown]
